FAERS Safety Report 8120398-0 (Version None)
Quarter: 2012Q1

REPORT INFORMATION
  Report Type: 
  Country: None (occurrence: None)
  Receive Date: 20120207
  Receipt Date: 20120202
  Transmission Date: 20120608
  Serious: Yes (Hospitalization)
  Sender: FDA-Public Use
  Company Number: JP-GLAXOSMITHKLINE-B0779403A

PATIENT
  Sex: Male

DRUGS (10)
  1. SPIRONOLACTONE [Concomitant]
     Route: 048
  2. VALTREX [Suspect]
     Indication: HERPES ZOSTER
     Dosage: 3000MG PER DAY
     Route: 048
     Dates: start: 20120128, end: 20120202
  3. FUROSEMIDE [Concomitant]
     Route: 065
  4. SOTALOL HYDROCHLORIDE [Concomitant]
     Route: 048
  5. CARVEDILOL [Concomitant]
     Route: 048
  6. URSO 250 [Concomitant]
     Route: 048
  7. MAGNESIUM OXIDE [Concomitant]
     Route: 048
  8. CANDESARTAN CILEXETIL [Concomitant]
     Route: 048
  9. MIGLITOL [Concomitant]
     Route: 048
  10. ETIZOLAM [Concomitant]
     Route: 048

REACTIONS (4)
  - RENAL IMPAIRMENT [None]
  - CEREBRAL INFARCTION [None]
  - DYSARTHRIA [None]
  - RENAL FAILURE [None]
